FAERS Safety Report 4393770-2 (Version None)
Quarter: 2004Q3

REPORT INFORMATION
  Report Type: 
  Country: None (occurrence: None)
  Receive Date: 20040709
  Receipt Date: 20040628
  Transmission Date: 20050211
  Serious: Yes (Hospitalization, Other)
  Sender: FDA-Public Use
  Company Number: US-BRISTOL-MYERS SQUIBB COMPANY-12633152

PATIENT
  Age: 25 Year
  Sex: Female

DRUGS (3)
  1. STAVUDINE [Suspect]
  2. DIDANOSINE [Suspect]
  3. LOPINAVIR + RITONAVIR [Suspect]

REACTIONS (4)
  - ENCEPHALOPATHY [None]
  - MUSCULAR WEAKNESS [None]
  - NEUROMYOPATHY [None]
  - OPHTHALMOPLEGIA [None]
